FAERS Safety Report 9871845 (Version 2)
Quarter: 2014Q2

REPORT INFORMATION
  Report Type: Report from Study
  Country: US (occurrence: US)
  Receive Date: 20140205
  Receipt Date: 20140402
  Transmission Date: 20141212
  Serious: Yes (Death, Other)
  Sender: FDA-Public Use
  Company Number: US-GILEAD-2014-0093616

PATIENT
  Sex: Female

DRUGS (2)
  1. AZTREONAM LYSINE [Suspect]
     Indication: CYSTIC FIBROSIS
     Dosage: 75 MG, UNK
     Route: 055
     Dates: start: 20111109, end: 20111109
  2. AZTREONAM LYSINE [Suspect]
     Indication: PSEUDOMONAS INFECTION

REACTIONS (2)
  - Herpes zoster [Fatal]
  - Sepsis [Fatal]
